FAERS Safety Report 21943307 (Version 1)
Quarter: 2023Q1

REPORT INFORMATION
  Report Type: Report from Study
  Country: IT (occurrence: IT)
  Receive Date: 20230202
  Receipt Date: 20230202
  Transmission Date: 20230418
  Serious: Yes (Hospitalization)
  Sender: FDA-Public Use
  Company Number: None

PATIENT
  Age: 12 Year
  Sex: Male
  Weight: 32 kg

DRUGS (3)
  1. VINCRISTINE [Suspect]
     Active Substance: VINCRISTINE
     Indication: Hodgkin^s disease
     Dosage: 1.67 MG/DAY IV ON 7, 14, 12/23/22
     Route: 042
     Dates: start: 20221207, end: 20221223
  2. ETOPOSIDE [Suspect]
     Active Substance: ETOPOSIDE
     Indication: Hodgkin^s disease
     Dosage: 139 MILLIGRAM DAILY; 139 MG/DAY IV FROM 12/7 TO 12/11/22,
     Route: 042
     Dates: start: 20221207, end: 20221211
  3. PREDNISONE [Concomitant]
     Active Substance: PREDNISONE
     Indication: Hodgkin^s disease
     Dosage: 65 MG/DAY (DIVIDED INTO 3 SUMS OF 25 MG + 3 X 5 MG + 25 MG) FROM 07/12 TO 21/12/22?25 MG/DAY ON 12/2
     Dates: start: 20221207, end: 20221222

REACTIONS (1)
  - Febrile neutropenia [Recovered/Resolved]

NARRATIVE: CASE EVENT DATE: 20221221
